FAERS Safety Report 14348811 (Version 1)
Quarter: 2018Q1

REPORT INFORMATION
  Report Type: Spontaneous
  Country: FR (occurrence: FR)
  Receive Date: 20180104
  Receipt Date: 20180104
  Transmission Date: 20180509
  Serious: Yes (Other)
  Sender: FDA-Public Use
  Company Number: FR-MERCK KGAA-2038287

PATIENT
  Age: 42 Year
  Sex: Female
  Weight: 97 kg

DRUGS (1)
  1. NOVOTHYROX [Suspect]
     Active Substance: LEVOTHYROXINE SODIUM
     Indication: AUTOIMMUNE THYROIDITIS
     Route: 048
     Dates: start: 20170501

REACTIONS (9)
  - Insomnia [Recovering/Resolving]
  - Amnesia [Recovering/Resolving]
  - Diffuse alopecia [Recovering/Resolving]
  - Arthralgia [Recovering/Resolving]
  - Constipation [Recovering/Resolving]
  - Myalgia [Recovering/Resolving]
  - Anxiety [Recovering/Resolving]
  - Disturbance in attention [Recovering/Resolving]
  - Fatigue [Recovering/Resolving]

NARRATIVE: CASE EVENT DATE: 20170615
